FAERS Safety Report 6169408-0 (Version None)
Quarter: 2009Q2

REPORT INFORMATION
  Report Type: 
  Country: None (occurrence: None)
  Receive Date: 20090424
  Receipt Date: 20090416
  Transmission Date: 20091009
  Serious: Yes (Other)
  Sender: FDA-Public Use
  Company Number: GXKR2009BR04752

PATIENT
  Age: 48 Year
  Sex: Female
  Weight: 49 kg

DRUGS (3)
  1. CIPROFLOXACIN [Suspect]
     Indication: URINARY TRACT INFECTION
     Dosage: 500 MG, BID, ORAL
     Route: 048
     Dates: start: 20090408, end: 20090411
  2. ALDACTONE [Concomitant]
  3. DIPYRONE (METAMIZOLE SODIUM) [Concomitant]

REACTIONS (8)
  - ABDOMINAL DISTENSION [None]
  - CARDIAC DISORDER [None]
  - NAUSEA [None]
  - OEDEMA [None]
  - PAIN [None]
  - PULMONARY CONGESTION [None]
  - TACHYCARDIA [None]
  - VALVULOPLASTY CARDIAC [None]
